FAERS Safety Report 6693404-8 (Version None)
Quarter: 2010Q2

REPORT INFORMATION
  Report Type: 
  Country: None (occurrence: None)
  Receive Date: 20100420
  Receipt Date: 20100405
  Transmission Date: 20101027
  Serious: Yes (Hospitalization)
  Sender: FDA-Public Use
  Company Number: 2010001208

PATIENT
  Age: 15 Year
  Sex: Female

DRUGS (5)
  1. ERLOTINIB/PLACEBO (TABLET) [Suspect]
     Indication: HEPATIC NEOPLASM MALIGNANT
     Dosage: (QD), ORAL
     Route: 048
     Dates: start: 20100315, end: 20100322
  2. SORAFENIB [Suspect]
     Indication: HEPATIC NEOPLASM MALIGNANT
     Dosage: (800 MG, QD), ORAL
     Route: 048
     Dates: start: 20100315, end: 20100322
  3. TRAMADOL HCL [Concomitant]
  4. METOCLOPRAMIDE (METOCLOPRAMIDE) [Concomitant]
  5. ALPRAZOLAM [Concomitant]

REACTIONS (1)
  - PLEURAL EFFUSION [None]
